FAERS Safety Report 16377551 (Version 1)
Quarter: 2019Q2

REPORT INFORMATION
  Report Type: Spontaneous
  Country: US (occurrence: US)
  Receive Date: 20190425
  Receipt Date: 20190425
  Transmission Date: 20190711
  Serious: No
  Sender: FDA-Public Use
  Company Number: None

PATIENT

DRUGS (2)
  1. LOSARTAN POTASSIUM TAB 25MG/GENERIC COZAAR [Suspect]
     Active Substance: LOSARTAN POTASSIUM
     Indication: BLOOD PRESSURE INCREASED
     Dosage: ?          QUANTITY:25 MG MILLIGRAM(S);?
     Route: 048
     Dates: start: 2018, end: 20180328
  2. LOSARTAN POTASSIUM TAB 25MG/GENERIC COZAAR [Suspect]
     Active Substance: LOSARTAN POTASSIUM
     Indication: OEDEMA PERIPHERAL
     Dosage: ?          QUANTITY:25 MG MILLIGRAM(S);?
     Route: 048
     Dates: start: 2018, end: 20180328

REACTIONS (2)
  - Recalled product [None]
  - Gastritis [None]

NARRATIVE: CASE EVENT DATE: 20190302
